FAERS Safety Report 8462387-2 (Version None)
Quarter: 2012Q2

REPORT INFORMATION
  Report Type: 
  Country: None (occurrence: None)
  Receive Date: 20120625
  Receipt Date: 20120618
  Transmission Date: 20120825
  Serious: Yes (Hospitalization)
  Sender: FDA-Public Use
  Company Number: US-BAYER-2012-061764

PATIENT
  Age: 34 Year
  Sex: Female
  Weight: 88.435 kg

DRUGS (12)
  1. YASMIN [Suspect]
  2. ACETAMINOPHEN [Concomitant]
     Indication: PAIN
     Dosage: 10 Q 4-6 HOURS PRN
  3. PREDNISONE [Concomitant]
     Dosage: 10 MG, BID
  4. ACETAMINOPHEN [Concomitant]
     Indication: PYREXIA
  5. LOVENOX [Concomitant]
  6. ATROVENT [Concomitant]
     Dosage: UNK UNK, Q4HR
  7. PREDNISONE [Concomitant]
     Dosage: 10 MG, TID
  8. SOLU-MEDROL [Concomitant]
     Dosage: 60 MG, EVERY 12 HOURS
  9. TOPROL-XL [Concomitant]
     Indication: HEART RATE ABNORMAL
     Dosage: 25 MG, DAILY
  10. PHENERGAN [Concomitant]
     Dosage: 12.5 MG, TID PRN
  11. ALBUTEROL [Concomitant]
     Dosage: UNK UNK, Q4HR
  12. PREDNISONE [Concomitant]
     Dosage: 10 MG, DAILY

REACTIONS (2)
  - GALLBLADDER DISORDER [None]
  - CEREBROVASCULAR ACCIDENT [None]
